FAERS Safety Report 24070728 (Version 1)
Quarter: 2024Q3

REPORT INFORMATION
  Report Type: Spontaneous
  Country: US (occurrence: None)
  Receive Date: 20240709
  Receipt Date: 20240709
  Transmission Date: 20241017
  Serious: Yes (Other)
  Sender: Public
  Company Number: None

PATIENT
  Age: 73 Year
  Sex: Female
  Weight: 89.82 kg

DRUGS (1)
  1. OZEMPIC [Suspect]
     Active Substance: SEMAGLUTIDE
     Indication: Obesity

REACTIONS (6)
  - Gastrointestinal disorder [None]
  - Adverse drug reaction [None]
  - Impaired gastric emptying [None]
  - Constipation [None]
  - Dysphagia [None]
  - Dysphonia [None]

NARRATIVE: CASE EVENT DATE: 20240212
